FAERS Safety Report 7643256-4 (Version None)
Quarter: 2011Q3

REPORT INFORMATION
  Report Type: 
  Country: None (occurrence: None)
  Receive Date: 20110729
  Receipt Date: 20110719
  Transmission Date: 20111222
  Serious: No
  Sender: FDA-Public Use
  Company Number: US-BIOGENIDEC-2011BI027035

PATIENT
  Age: 52 Year
  Sex: Male

DRUGS (1)
  1. TYSABRI [Suspect]
     Indication: MULTIPLE SCLEROSIS
     Route: 042
     Dates: start: 20110408

REACTIONS (7)
  - MOBILITY DECREASED [None]
  - APHASIA [None]
  - FACIAL SPASM [None]
  - TOOTHACHE [None]
  - POOR VENOUS ACCESS [None]
  - DRUG INEFFECTIVE [None]
  - HEADACHE [None]
